FAERS Safety Report 22598940 (Version 1)
Quarter: 2023Q2

REPORT INFORMATION
  Report Type: Report from Study
  Country: AR (occurrence: AR)
  Receive Date: 20230614
  Receipt Date: 20230614
  Transmission Date: 20230722
  Serious: Yes (Hospitalization)
  Sender: FDA-Public Use
  Company Number: AR-ELI_LILLY_AND_COMPANY-AR202304000003

PATIENT
  Age: 65 Year
  Sex: Male
  Weight: 78 kg

DRUGS (14)
  1. TIRZEPATIDE [Suspect]
     Active Substance: TIRZEPATIDE
     Indication: Type 2 diabetes mellitus
     Dosage: UNK, WEEKLY (1/W)
     Route: 058
     Dates: start: 20201009
  2. METFORMIN [Concomitant]
     Active Substance: METFORMIN HYDROCHLORIDE
     Indication: Type 2 diabetes mellitus
     Dosage: 850 MG, BID
     Route: 048
     Dates: start: 2012
  3. NOVORAPID [Concomitant]
     Active Substance: INSULIN ASPART
     Indication: Type 2 diabetes mellitus
     Dosage: 6 INTERNATIONAL UNIT, PRN
     Route: 058
     Dates: start: 2015
  4. ATORVASTATIN CALCIUM [Concomitant]
     Active Substance: ATORVASTATIN CALCIUM
     Indication: Product used for unknown indication
     Dosage: 105 MG, DAILY
     Route: 048
     Dates: start: 2000
  5. VALSARTAN [Concomitant]
     Active Substance: VALSARTAN
     Indication: Product used for unknown indication
     Dosage: 80 MG, DAILY
     Route: 048
     Dates: start: 2000
  6. FOLIC ACID [Concomitant]
     Active Substance: FOLIC ACID
     Indication: Anaemia
     Dosage: UNK, UNKNOWN
     Route: 048
     Dates: start: 20220712
  7. TAMSULOSIN [Concomitant]
     Active Substance: TAMSULOSIN
     Indication: Benign prostatic hyperplasia
     Dosage: UNK, UNKNOWN
     Route: 048
     Dates: start: 20220712
  8. OMEPRAZOLE [Concomitant]
     Active Substance: OMEPRAZOLE
     Indication: Upper gastrointestinal haemorrhage
     Dosage: UNK, UNKNOWN
     Route: 048
     Dates: start: 20220712
  9. ENALAPRIL [Concomitant]
     Active Substance: ENALAPRIL
     Indication: Product used for unknown indication
     Dosage: UNK, UNKNOWN
     Route: 048
     Dates: start: 20220712
  10. LORAZEPAM [Concomitant]
     Active Substance: LORAZEPAM
     Indication: Insomnia
     Dosage: UNK, UNKNOWN
     Route: 048
     Dates: start: 20220712
  11. IRON [Concomitant]
     Active Substance: IRON
     Indication: Prophylaxis
     Dosage: UNK, UNKNOWN
     Route: 048
     Dates: start: 20220811
  12. CARVEDILOL [Concomitant]
     Active Substance: CARVEDILOL
     Indication: Product used for unknown indication
     Dosage: UNK, UNKNOWN
     Route: 048
     Dates: start: 20220712
  13. INSULATARD [INSULIN HUMAN INJECTION, ISOPHANE [Concomitant]
     Indication: Type 2 diabetes mellitus
     Dosage: 51 INTERNATIONAL UNIT, DAILY
     Route: 058
     Dates: start: 20220818, end: 20221120
  14. INSULATARD [INSULIN HUMAN INJECTION, ISOPHANE [Concomitant]
     Dosage: 60 INTERNATIONAL UNIT, DAILY
     Route: 058
     Dates: start: 20221121

REACTIONS (1)
  - Hepatic cirrhosis [Recovered/Resolved]

NARRATIVE: CASE EVENT DATE: 20230213
